FAERS Safety Report 16401429 (Version 1)
Quarter: 2019Q2

REPORT INFORMATION
  Report Type: Spontaneous
  Country: FR (occurrence: FR)
  Receive Date: 20190606
  Receipt Date: 20190606
  Transmission Date: 20190711
  Serious: Yes (Hospitalization, Congenital Anomaly)
  Sender: FDA-Public Use
  Company Number: FR-ALLERGAN-1923983US

PATIENT
  Sex: Female

DRUGS (3)
  1. ESCITALOPRAM OXALATE - BP [Suspect]
     Active Substance: ESCITALOPRAM OXALATE
     Indication: PRODUCT USED FOR UNKNOWN INDICATION
     Dosage: 10 MG, QD
     Route: 048
     Dates: start: 20190128, end: 20190205
  2. IMOVANE [Suspect]
     Active Substance: ZOPICLONE
     Indication: PRODUCT USED FOR UNKNOWN INDICATION
     Route: 048
     Dates: start: 20181108, end: 20190205
  3. DONORMYL (DOXYLAMINE SUCCINATE) [Suspect]
     Active Substance: DOXYLAMINE SUCCINATE
     Indication: PRODUCT USED FOR UNKNOWN INDICATION
     Route: 048
     Dates: start: 20190109, end: 20190205

REACTIONS (2)
  - Abortion induced [Recovered/Resolved]
  - Pregnancy [Unknown]

NARRATIVE: CASE EVENT DATE: 20190225
